FAERS Safety Report 7255774-1 (Version None)
Quarter: 2011Q1

REPORT INFORMATION
  Report Type: 
  Country: None (occurrence: None)
  Receive Date: 20110129
  Receipt Date: 20100826
  Transmission Date: 20110831
  Serious: No
  Sender: FDA-Public Use
  Company Number: US-ABBOTT-10P-163-0667933-00

PATIENT
  Sex: Female
  Weight: 81.72 kg

DRUGS (1)
  1. HUMIRA [Suspect]
     Indication: RHEUMATOID ARTHRITIS
     Route: 058
     Dates: start: 20060101, end: 20100601

REACTIONS (6)
  - URINE COLOUR ABNORMAL [None]
  - MUSCLE ENZYME INCREASED [None]
  - RENAL FAILURE [None]
  - ABDOMINAL PAIN [None]
  - BACK PAIN [None]
  - FATIGUE [None]
